FAERS Safety Report 7416430-X (Version None)
Quarter: 2011Q2

REPORT INFORMATION
  Report Type: 
  Country: None (occurrence: None)
  Receive Date: 20110414
  Receipt Date: 20110404
  Transmission Date: 20111010
  Serious: Yes (Other)
  Sender: FDA-Public Use
  Company Number: US-AMGEN-USASP2011017726

PATIENT
  Age: 66 Year
  Sex: Female

DRUGS (1)
  1. ENBREL [Suspect]
     Indication: PSORIATIC ARTHROPATHY
     Dosage: 50 MG, QWK
     Dates: start: 20030601

REACTIONS (5)
  - INJECTION SITE HAEMATOMA [None]
  - KNEE OPERATION [None]
  - PSORIATIC ARTHROPATHY [None]
  - TOE OPERATION [None]
  - INJECTION SITE PAIN [None]
